FAERS Safety Report 16050227 (Version 1)
Quarter: 2019Q1

REPORT INFORMATION
  Report Type: Report from Study
  Country: FR (occurrence: FR)
  Receive Date: 20190308
  Receipt Date: 20190308
  Transmission Date: 20190418
  Serious: Yes (Other)
  Sender: FDA-Public Use
  Company Number: FR-SUN PHARMACEUTICAL INDUSTRIES LTD-2019RR-201022

PATIENT
  Age: 77 Year

DRUGS (3)
  1. GEFITINIB. [Suspect]
     Active Substance: GEFITINIB
     Indication: LUNG ADENOCARCINOMA STAGE IV
     Dosage: AS FIRST LINE OF EGFR 1G TKI
     Route: 065
  2. PEMETREXED. [Suspect]
     Active Substance: PEMETREXED
     Indication: LUNG ADENOCARCINOMA STAGE IV
     Dosage: AS 1ST LINE AFTER EGFR 1G TKI
     Route: 065
  3. CARBOPLATIN. [Suspect]
     Active Substance: CARBOPLATIN
     Indication: LUNG ADENOCARCINOMA STAGE IV
     Dosage: AS 1ST LINE AFTER EGFR 1G TKI
     Route: 065

REACTIONS (3)
  - EGFR gene mutation [Unknown]
  - Disease progression [Unknown]
  - Drug resistance [Unknown]
